FAERS Safety Report 7519782-5 (Version None)
Quarter: 2011Q2

REPORT INFORMATION
  Report Type: 
  Country: None (occurrence: None)
  Receive Date: 20110602
  Receipt Date: 20110531
  Transmission Date: 20111010
  Serious: No
  Sender: FDA-Public Use
  Company Number: US-PFIZER INC-2011110045

PATIENT
  Sex: Male
  Weight: 90 kg

DRUGS (5)
  1. OMEPRAZOLE [Concomitant]
     Indication: GASTROOESOPHAGEAL REFLUX DISEASE
     Dosage: UNK, DAILY
  2. ASPIRIN [Concomitant]
     Dosage: 81 MG, DAILY
  3. CHANTIX [Suspect]
     Indication: SMOKING CESSATION THERAPY
     Dosage: 0.5 MG, 1X/DAY
     Route: 048
     Dates: start: 20110101, end: 20110512
  4. NORVASC [Concomitant]
     Indication: HYPERTENSION
     Dosage: UNK, DAILY
     Dates: start: 20100901
  5. FENOFIBRATE [Concomitant]
     Indication: BLOOD CHOLESTEROL ABNORMAL
     Dosage: UNK, DAILY

REACTIONS (5)
  - FEELING ABNORMAL [None]
  - ABNORMAL DREAMS [None]
  - DEPRESSION [None]
  - CONSTIPATION [None]
  - CRYING [None]
